FAERS Safety Report 8586631-6 (Version None)
Quarter: 2012Q3

REPORT INFORMATION
  Report Type: 
  Country: None (occurrence: None)
  Receive Date: 20120810
  Receipt Date: 20120731
  Transmission Date: 20120928
  Serious: Yes (Hospitalization)
  Sender: FDA-Public Use
  Company Number: US-ABBOTT-12P-163-0951120-00

PATIENT
  Sex: Female
  Weight: 74.002 kg

DRUGS (1)
  1. LUPRON DEPOT [Suspect]
     Indication: ENDOMETRIOSIS
     Dates: start: 20120618, end: 20120618

REACTIONS (4)
  - VOMITING [None]
  - DIARRHOEA [None]
  - NAUSEA [None]
  - ADENOMYOSIS [None]
